FAERS Safety Report 5950205-3 (Version None)
Quarter: 2008Q4

REPORT INFORMATION
  Report Type: 
  Country: None (occurrence: None)
  Receive Date: 20081112
  Receipt Date: 20081110
  Transmission Date: 20090506
  Serious: Yes (Hospitalization)
  Sender: FDA-Public Use
  Company Number: B0427693A

PATIENT
  Age: 61 Year
  Sex: Female
  Weight: 60 kg

DRUGS (2)
  1. TOPOTECAN [Suspect]
     Indication: OVARIAN CANCER
     Dosage: 6.63MG WEEKLY
     Route: 042
     Dates: start: 20060503, end: 20060531
  2. PANTOZOL [Concomitant]
     Dosage: 20MG PER DAY
     Route: 048
     Dates: start: 20060115

REACTIONS (2)
  - DRUG INEFFECTIVE [None]
  - ERYSIPELAS [None]
